FAERS Safety Report 11003659 (Version 1)
Quarter: 2015Q2

REPORT INFORMATION
  Report Type: Report from Study
  Country: BE (occurrence: BE)
  Receive Date: 20150409
  Receipt Date: 20150409
  Transmission Date: 20150821
  Serious: Yes (Hospitalization)
  Sender: FDA-Public Use
  Company Number: BE-BIOGENIDEC-2015BI044169

PATIENT
  Age: 64 Year
  Sex: Female

DRUGS (3)
  1. ASAFLOW [Concomitant]
     Active Substance: ASPIRIN
  2. AVONEX [Suspect]
     Active Substance: INTERFERON BETA-1A
     Indication: PRODUCT USED FOR UNKNOWN INDICATION
     Route: 030
     Dates: start: 20121213
  3. LEDERTREXATE [Concomitant]
     Active Substance: METHOTREXATE

REACTIONS (2)
  - Procedural pain [Not Recovered/Not Resolved]
  - Myocardial infarction [Recovered/Resolved with Sequelae]

NARRATIVE: CASE EVENT DATE: 201503
